FAERS Safety Report 24200794 (Version 1)
Quarter: 2024Q3

REPORT INFORMATION
  Report Type: Spontaneous
  Country: US (occurrence: None)
  Receive Date: 20240810
  Receipt Date: 20240810
  Transmission Date: 20241017
  Serious: Yes (Life-Threatening)
  Sender: Public
  Company Number: None

PATIENT
  Age: 78 Year
  Sex: Male
  Weight: 121.5 kg

DRUGS (11)
  1. VUEWAY [Suspect]
     Active Substance: GADOPICLENOL
     Indication: Scan with contrast
  2. AMILORIDE [Concomitant]
     Active Substance: AMILORIDE
  3. CELECOXIB [Concomitant]
     Active Substance: CELECOXIB
  4. FAMOTIDINE [Concomitant]
     Active Substance: FAMOTIDINE
  5. FEBUXOSTAT [Concomitant]
     Active Substance: FEBUXOSTAT
  6. GABAPENTIN [Concomitant]
     Active Substance: GABAPENTIN
  7. LEVOTHYROXINE [Concomitant]
     Active Substance: LEVOTHYROXINE
  8. LISINOPRIL [Concomitant]
     Active Substance: LISINOPRIL
  9. SIMVASTATIN [Concomitant]
     Active Substance: SIMVASTATIN
  10. WARFARIN [Concomitant]
     Active Substance: WARFARIN
  11. AMLODIPINE [Concomitant]
     Active Substance: AMLODIPINE BESYLATE

REACTIONS (2)
  - Drug hypersensitivity [None]
  - Skin discolouration [None]

NARRATIVE: CASE EVENT DATE: 20240808
